FAERS Safety Report 19781353 (Version 1)
Quarter: 2021Q3

REPORT INFORMATION
  Report Type: Spontaneous
  Country: NL (occurrence: NL)
  Receive Date: 20210902
  Receipt Date: 20210902
  Transmission Date: 20211014
  Serious: Yes (Hospitalization)
  Sender: FDA-Public Use
  Company Number: NL-MYLANLABS-2021M1057852

PATIENT
  Sex: Male
  Weight: 92 kg

DRUGS (1)
  1. ESCITALOPRAM [Suspect]
     Active Substance: ESCITALOPRAM OXALATE
     Indication: DEPRESSION
     Dosage: 10 MILLIGRAM (TABLET)
     Dates: start: 202007

REACTIONS (2)
  - Rebound psychosis [Recovered/Resolved]
  - Bipolar I disorder [Recovered/Resolved]
